FAERS Safety Report 11106598 (Version 2)
Quarter: 2015Q2

REPORT INFORMATION
  Report Type: Spontaneous
  Country: BR (occurrence: None)
  Receive Date: 20150508
  Receipt Date: 20150522
  Transmission Date: 20150821
  Serious: Yes (Hospitalization)
  Sender: FDA-Public Use
  Company Number: 2015-000898

PATIENT
  Age: 89 Year
  Sex: Female
  Weight: 53.3 kg

DRUGS (6)
  1. ACTONEL [Suspect]
     Active Substance: RISEDRONATE SODIUM
     Indication: OSTEOPOROSIS
     Dosage: 150 MG ONCE MONTHLY, ORAL
     Route: 048
     Dates: start: 201408
  2. VITAMIN D3 [Concomitant]
     Active Substance: CHOLECALCIFEROL
  3. PLAVIX (CLOPIDOGREL BISULFATE) [Concomitant]
  4. CITALOR (ATORVASTATIN CALCIUM) [Concomitant]
  5. LEXAPRO [Concomitant]
     Active Substance: ESCITALOPRAM OXALATE
  6. NORVASC [Concomitant]
     Active Substance: AMLODIPINE BESYLATE

REACTIONS (11)
  - Malaise [None]
  - Vomiting [None]
  - Nausea [None]
  - Rhinorrhoea [None]
  - Diarrhoea [None]
  - Cough [None]
  - Dehydration [None]
  - Fatigue [None]
  - Tremor [None]
  - Influenza [None]
  - Dysphagia [None]

NARRATIVE: CASE EVENT DATE: 201504
